FAERS Safety Report 5405873-1 (Version None)
Quarter: 2007Q3

REPORT INFORMATION
  Report Type: 
  Country: None (occurrence: None)
  Receive Date: 20070806
  Receipt Date: 20070725
  Transmission Date: 20080115
  Serious: Yes (Hospitalization, Disabling)
  Sender: FDA-Public Use
  Company Number: CH-AMGEN-US237190

PATIENT
  Age: 44 Year
  Sex: Female
  Weight: 52 kg

DRUGS (7)
  1. ENBREL [Suspect]
     Indication: SPONDYLOARTHROPATHY
     Dosage: 50 MG PER WEEK
     Route: 058
     Dates: start: 20070404, end: 20070601
  2. ISONIAZID [Suspect]
     Indication: TUBERCULOSIS TEST POSITIVE
     Route: 048
     Dates: start: 20070208
  3. LEFLUNOMIDE [Suspect]
     Indication: SPONDYLOARTHROPATHY
     Dosage: 160 MG EVERY 1 TOT
     Route: 042
     Dates: start: 20070306, end: 20070306
  4. LORAZEPAM [Concomitant]
     Dosage: 1 DOSE EVERY 1 PRN
  5. NEXIUM [Concomitant]
     Route: 048
  6. MEFENAMIC ACID [Concomitant]
     Route: 048
  7. DAFALGAN [Concomitant]
     Dosage: 2 -3 G PER DAY
     Route: 048

REACTIONS (7)
  - DRUG TOXICITY [None]
  - FATIGUE [None]
  - GENERAL PHYSICAL HEALTH DETERIORATION [None]
  - HEADACHE [None]
  - NAUSEA [None]
  - OPTIC NEURITIS RETROBULBAR [None]
  - PHOTOPHOBIA [None]
